FAERS Safety Report 19984084 (Version 3)
Quarter: 2021Q4

REPORT INFORMATION
  Report Type: Spontaneous
  Country: US (occurrence: US)
  Receive Date: 20211021
  Receipt Date: 20211126
  Transmission Date: 20220304
  Serious: Yes (Hospitalization)
  Sender: FDA-Public Use
  Company Number: US-ALKERMES INC.-ALK-2021-005412

PATIENT
  Sex: Female
  Weight: 64.762 kg

DRUGS (6)
  1. VIVITROL [Suspect]
     Active Substance: NALTREXONE
     Indication: Alcoholism
     Dosage: 380 MILLIGRAM, QMO
     Route: 030
     Dates: start: 20210924
  2. VIVITROL [Suspect]
     Active Substance: NALTREXONE
     Dosage: 380 MILLIGRAM, QMO
     Route: 030
     Dates: start: 20210824, end: 20210824
  3. VIVITROL [Suspect]
     Active Substance: NALTREXONE
     Dosage: 380 MILLIGRAM, QMO
     Route: 030
     Dates: start: 20201103, end: 20201103
  4. VIVITROL [Suspect]
     Active Substance: NALTREXONE
     Dosage: 380 MILLIGRAM, QMO
     Route: 030
     Dates: start: 20200221, end: 20200221
  5. VIVITROL [Suspect]
     Active Substance: NALTREXONE
     Dosage: UNK
  6. ACAMPROSATE [Concomitant]
     Active Substance: ACAMPROSATE
     Indication: Alcoholism
     Dosage: UNK
     Route: 065
     Dates: start: 2020, end: 2020

REACTIONS (9)
  - Pelvic fracture [Recovered/Resolved]
  - Fractured sacrum [Recovered/Resolved]
  - Ilium fracture [Recovered/Resolved]
  - Acetabulum fracture [Recovered/Resolved]
  - Fall [Recovered/Resolved]
  - Alcohol poisoning [Recovered/Resolved]
  - Treatment noncompliance [Recovered/Resolved]
  - Alcoholism [Recovered/Resolved]
  - Pain [Recovered/Resolved]

NARRATIVE: CASE EVENT DATE: 20200101
